FAERS Safety Report 9342249 (Version 1)
Quarter: 2013Q2

REPORT INFORMATION
  Report Type: Spontaneous
  Country: KR (occurrence: KR)
  Receive Date: 20130611
  Receipt Date: 20130611
  Transmission Date: 20140414
  Serious: Yes (Other)
  Sender: FDA-Public Use
  Company Number: KR-BAYER-2013-068998

PATIENT
  Sex: Female

DRUGS (1)
  1. YAZ [Suspect]
     Indication: HORMONE LEVEL ABNORMAL
     Dosage: 1 DF, QD
     Route: 048
     Dates: start: 20130528, end: 20130603

REACTIONS (5)
  - Dizziness [Recovered/Resolved]
  - Nausea [None]
  - Hunger [None]
  - Loss of consciousness [Recovered/Resolved]
  - Off label use [None]
